FAERS Safety Report 8487330-1 (Version None)
Quarter: 2012Q3

REPORT INFORMATION
  Report Type: 
  Country: None (occurrence: None)
  Receive Date: 20120705
  Receipt Date: 20120703
  Transmission Date: 20120928
  Serious: No
  Sender: FDA-Public Use
  Company Number: US-BIOGENIDEC-2012BI023443

PATIENT
  Age: 55 Year
  Sex: Female

DRUGS (1)
  1. TYSABRI [Suspect]
     Indication: MULTIPLE SCLEROSIS
     Route: 042
     Dates: start: 20071204

REACTIONS (6)
  - EAR PAIN [None]
  - AURICULAR SWELLING [None]
  - NASAL CONGESTION [None]
  - PRODUCTIVE COUGH [None]
  - EAR DISORDER [None]
  - COUGH [None]
